FAERS Safety Report 5492410-9 (Version None)
Quarter: 2007Q4

REPORT INFORMATION
  Report Type: 
  Country: None (occurrence: None)
  Receive Date: 20071015
  Receipt Date: 20070730
  Transmission Date: 20080405
  Serious: No
  Sender: FDA-Public Use
  Company Number: 2007SP002697

PATIENT
  Age: 50 Year
  Sex: Male
  Weight: 136.0791 kg

DRUGS (7)
  1. LUNESTA [Suspect]
     Indication: INSOMNIA
     Dosage: 3 MG; PRN; ORAL
     Route: 048
     Dates: start: 20070101, end: 20070701
  2. JANUVIA [Concomitant]
  3. PREVACID [Concomitant]
  4. LISINOPRIL [Concomitant]
  5. WELLBUTRIN [Concomitant]
  6. TOPAMAX [Concomitant]
  7. VYTORIN [Concomitant]

REACTIONS (1)
  - MIDDLE INSOMNIA [None]
